FAERS Safety Report 6633256-5 (Version None)
Quarter: 2010Q1

REPORT INFORMATION
  Report Type: 
  Country: None (occurrence: None)
  Receive Date: 20100312
  Receipt Date: 20100306
  Transmission Date: 20100710
  Serious: Yes (Other)
  Sender: FDA-Public Use
  Company Number: US-PFIZER INC-2010029161

PATIENT
  Age: 84 Year
  Sex: Female

DRUGS (4)
  1. CELEBREX [Suspect]
     Indication: ARTHRITIS
     Dosage: 200 MG, 1X/DAY
     Dates: start: 20100305, end: 20100306
  2. HYDROCORTISONE SODIUM SUCCINATE [Suspect]
     Dosage: UNK
     Dates: start: 20100304
  3. LISINOPRIL [Concomitant]
     Indication: HYPERTENSION
     Dosage: 10 MG, 1X/DAY
  4. MULTI-VITAMINS [Concomitant]
     Dosage: UNK

REACTIONS (4)
  - EYE SWELLING [None]
  - FLUSHING [None]
  - HEADACHE [None]
  - HYPERSENSITIVITY [None]
